FAERS Safety Report 13765840 (Version 3)
Quarter: 2017Q3

REPORT INFORMATION
  Report Type: Spontaneous
  Country: FI (occurrence: FI)
  Receive Date: 20170718
  Receipt Date: 20170928
  Transmission Date: 20171127
  Serious: Yes (Hospitalization, Other)
  Sender: FDA-Public Use
  Company Number: FI-MYLANLABS-2017M1041415

PATIENT
  Sex: Female

DRUGS (3)
  1. ALENDRONAT MYLAN 70 MG TABLETTI [Suspect]
     Active Substance: ALENDRONATE SODIUM
     Indication: BONE DISORDER
     Dosage: 70 MG, QW
     Route: 048
     Dates: start: 2014
  2. PANADOL [Concomitant]
     Active Substance: ACETAMINOPHEN
     Indication: HEADACHE
     Dosage: 1 TABLET 1-2 TIMES A DAY WHEN NEEDED
  3. IBUMAX [Concomitant]
     Indication: HEADACHE
     Dosage: 400 MG, QD
     Route: 048

REACTIONS (19)
  - Hypoaesthesia [Recovered/Resolved]
  - Memory impairment [Recovered/Resolved]
  - Hemiplegia [Recovered/Resolved]
  - Aphasia [Recovered/Resolved]
  - Disorganised speech [Recovered/Resolved]
  - Mouth ulceration [Recovered/Resolved]
  - Headache [Recovered/Resolved]
  - Fracture [Recovered/Resolved]
  - Joint hyperextension [Recovered/Resolved]
  - Dysstasia [Recovered/Resolved]
  - Pain in extremity [Recovered/Resolved]
  - Infrequent bowel movements [Recovered/Resolved]
  - Dysgraphia [Recovered/Resolved]
  - Visual impairment [Recovered/Resolved]
  - Abdominal pain [Recovered/Resolved]
  - Cerebral haemorrhage [Recovered/Resolved]
  - Dyspepsia [Recovered/Resolved]
  - Motor dysfunction [Recovered/Resolved]
  - Photophobia [Recovered/Resolved]

NARRATIVE: CASE EVENT DATE: 2015
